FAERS Safety Report 20523311 (Version 1)
Quarter: 2022Q1

REPORT INFORMATION
  Report Type: Spontaneous
  Country: IT (occurrence: IT)
  Receive Date: 20220227
  Receipt Date: 20220227
  Transmission Date: 20220423
  Serious: Yes (Hospitalization)
  Sender: FDA-Public Use
  Company Number: IT-STRIDES ARCOLAB LIMITED-2022SP001673

PATIENT
  Age: 85 Year
  Sex: Female

DRUGS (4)
  1. ACETAZOLAMIDE [Suspect]
     Active Substance: ACETAZOLAMIDE
     Indication: Prophylaxis
     Dosage: 250 MILLIGRAM, QD  PRESCRIBED FOR 2 DAYS
     Route: 048
  2. ATORVASTATIN [Concomitant]
     Active Substance: ATORVASTATIN
     Indication: Dyslipidaemia
     Dosage: 40 MILLIGRAM
     Route: 065
  3. DEXAMETHASONE [Concomitant]
     Active Substance: DEXAMETHASONE
     Indication: Prophylaxis
     Dosage: UNK, QID, DROPS
     Route: 047
  4. TROPICAMIDE [Concomitant]
     Active Substance: TROPICAMIDE
     Indication: Pupil dilation procedure
     Dosage: UNK
     Route: 065

REACTIONS (5)
  - Choroidal effusion [Recovered/Resolved]
  - Condition aggravated [Recovered/Resolved]
  - Choroidal detachment [Recovered/Resolved]
  - Lens dislocation [Unknown]
  - Myopia [Recovered/Resolved]
